FAERS Safety Report 6283051-4 (Version None)
Quarter: 2009Q3

REPORT INFORMATION
  Report Type: 
  Country: None (occurrence: None)
  Receive Date: 20090724
  Receipt Date: 20090714
  Transmission Date: 20100115
  Serious: Yes (Hospitalization, Other)
  Sender: FDA-Public Use
  Company Number: US-PFIZER INC-2009190949

PATIENT
  Sex: Female
  Weight: 74.83 kg

DRUGS (11)
  1. CHANTIX [Suspect]
     Indication: SMOKING CESSATION THERAPY
     Dosage: 0.5 MG, 1X/DAY
     Dates: start: 20090327, end: 20090701
  2. EFFEXOR [Concomitant]
     Dosage: UNK
  3. KLONOPIN [Concomitant]
     Dosage: UNK
  4. ABILIFY [Concomitant]
     Dosage: UNK
  5. TRAZODONE HYDROCHLORIDE [Concomitant]
     Dosage: UNK
  6. LYRICA [Concomitant]
     Dosage: UNK
  7. ZANAFLEX [Concomitant]
     Dosage: UNK
  8. LITHIUM CARBONATE [Concomitant]
     Dosage: UNK
  9. DEPAKOTE [Concomitant]
     Dosage: UNK
  10. LEXAPRO [Concomitant]
     Dosage: UNK
  11. AMBIEN [Concomitant]
     Dosage: UNK

REACTIONS (12)
  - AGITATION [None]
  - DELUSION [None]
  - DEPRESSION [None]
  - HOMICIDAL IDEATION [None]
  - HOSTILITY [None]
  - MANIA [None]
  - PARANOIA [None]
  - PSYCHOTIC DISORDER [None]
  - SELF INJURIOUS BEHAVIOUR [None]
  - SUICIDAL BEHAVIOUR [None]
  - SWOLLEN TONGUE [None]
  - WEIGHT INCREASED [None]
